FAERS Safety Report 8162766-7 (Version None)
Quarter: 2012Q1

REPORT INFORMATION
  Report Type: 
  Country: None (occurrence: None)
  Receive Date: 20120103
  Receipt Date: 20110910
  Transmission Date: 20120608
  Serious: No
  Sender: FDA-Public Use
  Company Number: AE-2011-001476

PATIENT
  Sex: Male
  Weight: 102.0593 kg

DRUGS (11)
  1. PRANDIN (DEFLAZACORT) [Concomitant]
  2. PEGASYS [Concomitant]
  3. HYDROCHLOROTHIAZIDE [Concomitant]
  4. ABILIFY [Concomitant]
  5. INCIVEK [Suspect]
     Dosage: (3 IN 1 D), ORAL
     Route: 048
     Dates: start: 20110902
  6. LISINOPRIL [Concomitant]
  7. PRISTIQ [Concomitant]
  8. METOPROLOL TARTRATE [Concomitant]
  9. RIBAVIRIN [Concomitant]
  10. AMBIEN [Concomitant]
  11. VICODIN [Concomitant]

REACTIONS (6)
  - ANORECTAL DISCOMFORT [None]
  - VOMITING [None]
  - HAEMORRHOIDS [None]
  - HEADACHE [None]
  - NAUSEA [None]
  - PRURITUS [None]
